FAERS Safety Report 6325196-6 (Version None)
Quarter: 2009Q3

REPORT INFORMATION
  Report Type: 
  Country: None (occurrence: None)
  Receive Date: 20090824
  Receipt Date: 20090819
  Transmission Date: 20100115
  Serious: Yes (Death, Hospitalization, Other)
  Sender: FDA-Public Use
  Company Number: PHEH2009US05807

PATIENT
  Sex: Female
  Weight: 64 kg

DRUGS (5)
  1. EXJADE [Suspect]
     Indication: SICKLE CELL ANAEMIA
     Dosage: ^500-1500 (DOSE RANGED)^
     Route: 048
     Dates: start: 20050101
  2. EXJADE [Suspect]
     Indication: CHELATION THERAPY
  3. ANTIARRHYTHMICS, CLASS I AND III [Concomitant]
  4. ANTIHISTAMINES [Concomitant]
  5. DESFERAL [Concomitant]
     Indication: CHELATION THERAPY
     Dosage: 2 G, UNK
     Route: 058
     Dates: start: 20030101

REACTIONS (14)
  - ASPARTATE AMINOTRANSFERASE INCREASED [None]
  - ATRIAL FIBRILLATION [None]
  - BLOOD CREATININE INCREASED [None]
  - CARDIOGENIC SHOCK [None]
  - CHEST PAIN [None]
  - DYSPNOEA [None]
  - GASTROINTESTINAL HAEMORRHAGE [None]
  - HAEMOGLOBIN DECREASED [None]
  - ISCHAEMIC HEPATITIS [None]
  - OEDEMA [None]
  - RENAL FAILURE [None]
  - RESPIRATORY FAILURE [None]
  - SEPTIC SHOCK [None]
  - TRICUSPID VALVE REPAIR [None]
